FAERS Safety Report 6621475-3 (Version None)
Quarter: 2010Q1

REPORT INFORMATION
  Report Type: 
  Country: None (occurrence: None)
  Receive Date: 20100309
  Receipt Date: 20100217
  Transmission Date: 20100710
  Serious: No
  Sender: FDA-Public Use
  Company Number: US-BIOGENIDEC-2010BI005294

PATIENT
  Sex: Female

DRUGS (4)
  1. AVONEX [Suspect]
     Indication: MULTIPLE SCLEROSIS
     Route: 030
     Dates: start: 19960101, end: 20030101
  2. AVONEX [Suspect]
     Route: 030
     Dates: start: 20030101
  3. AVONEX [Suspect]
     Route: 030
  4. AVONEX [Suspect]
     Route: 030
     Dates: end: 20090601

REACTIONS (13)
  - AMNESIA [None]
  - CONTUSION [None]
  - FALL [None]
  - HEARING IMPAIRED [None]
  - INJURY ASSOCIATED WITH DEVICE [None]
  - LOWER EXTREMITY MASS [None]
  - MOBILITY DECREASED [None]
  - MONOPLEGIA [None]
  - PAIN IN EXTREMITY [None]
  - PROGRESSIVE MULTIPLE SCLEROSIS [None]
  - ROTATOR CUFF SYNDROME [None]
  - VISUAL IMPAIRMENT [None]
  - WEIGHT DECREASED [None]
